FAERS Safety Report 5903159-X (Version None)
Quarter: 2008Q3

REPORT INFORMATION
  Report Type: 
  Country: None (occurrence: None)
  Receive Date: 20080929
  Receipt Date: 20080929
  Transmission Date: 20090109
  Serious: Yes (Life-Threatening)
  Sender: FDA-Public Use
  Company Number: None

PATIENT
  Age: 33 Year
  Sex: Female
  Weight: 86.1834 kg

DRUGS (1)
  1. SEROQUEL [Suspect]
     Indication: INSOMNIA
     Dosage: 300MG ONCE A DAY PO
     Route: 048
     Dates: start: 20030225, end: 20080926

REACTIONS (3)
  - MUSCLE DISORDER [None]
  - NERVOUS SYSTEM DISORDER [None]
  - TONGUE DISORDER [None]
